FAERS Safety Report 18617034 (Version 4)
Quarter: 2021Q1

REPORT INFORMATION
  Report Type: Spontaneous
  Country: ES (occurrence: ES)
  Receive Date: 20201215
  Receipt Date: 20210330
  Transmission Date: 20210419
  Serious: Yes (Life-Threatening, Other)
  Sender: FDA-Public Use
  Company Number: ES-AUROBINDO-AUR-APL-2020-060639

PATIENT
  Age: 53 Year
  Sex: Female

DRUGS (3)
  1. CLADRIBINE. [Suspect]
     Active Substance: CLADRIBINE
     Indication: MULTIPLE SCLEROSIS
     Dosage: UNK, SECOND CYCLE THERAPY
     Route: 065
     Dates: start: 202001
  2. GABAPENTIN. [Suspect]
     Active Substance: GABAPENTIN
     Indication: NEURALGIA
     Dosage: UNK
     Route: 065
  3. CLADRIBINE. [Suspect]
     Active Substance: CLADRIBINE
     Indication: NEURALGIA
     Dosage: UNK, FIRST CYCLE THERAPY
     Route: 065
     Dates: start: 201912

REACTIONS (6)
  - Haematotoxicity [Not Recovered/Not Resolved]
  - Lymphopenia [Recovered/Resolved]
  - Neutropenia [Recovered/Resolved]
  - Leukopenia [Not Recovered/Not Resolved]
  - Asthenia [Unknown]
  - Neuralgia [Unknown]

NARRATIVE: CASE EVENT DATE: 2020
